FAERS Safety Report 8172282-4 (Version None)
Quarter: 2012Q1

REPORT INFORMATION
  Report Type: 
  Country: None (occurrence: None)
  Receive Date: 20120229
  Receipt Date: 20120221
  Transmission Date: 20120608
  Serious: No
  Sender: FDA-Public Use
  Company Number: US-BIOGENIDEC-2012BI004449

PATIENT
  Age: 33 Year
  Sex: Female

DRUGS (4)
  1. TYSABRI [Suspect]
     Indication: MULTIPLE SCLEROSIS
     Route: 042
     Dates: start: 20080723, end: 20081125
  2. AVONEX [Concomitant]
     Indication: MULTIPLE SCLEROSIS
     Route: 030
     Dates: start: 20040418
  3. TYSABRI [Suspect]
     Route: 042
     Dates: start: 20110613
  4. TYSABRI [Suspect]
     Route: 042
     Dates: start: 20100301, end: 20101129

REACTIONS (4)
  - GAIT DISTURBANCE [None]
  - PAIN IN EXTREMITY [None]
  - BALANCE DISORDER [None]
  - ABASIA [None]
